FAERS Safety Report 7620086-0 (Version None)
Quarter: 2011Q3

REPORT INFORMATION
  Report Type: 
  Country: None (occurrence: None)
  Receive Date: 20110719
  Receipt Date: 20110708
  Transmission Date: 20111222
  Serious: Yes (Hospitalization, Other)
  Sender: FDA-Public Use
  Company Number: JP-JNJFOC-20100704859

PATIENT
  Sex: Male
  Weight: 56 kg

DRUGS (16)
  1. REMICADE [Suspect]
     Route: 042
     Dates: start: 20100225
  2. FERROUS CITRATE [Concomitant]
     Indication: IRON DEFICIENCY ANAEMIA
     Route: 048
     Dates: start: 20090924, end: 20101010
  3. PENTASA [Concomitant]
     Indication: CROHN'S DISEASE
     Route: 048
     Dates: start: 20070101
  4. REMICADE [Suspect]
     Indication: CROHN'S DISEASE
     Route: 042
     Dates: start: 20100128
  5. IMURAN [Suspect]
     Indication: CROHN'S DISEASE
     Route: 048
     Dates: start: 20090403, end: 20090416
  6. LEUKERIN [Concomitant]
     Indication: CROHN'S DISEASE
     Route: 048
     Dates: start: 20090709, end: 20090913
  7. REMICADE [Suspect]
     Route: 042
     Dates: start: 20090514
  8. UNKNOWN ADRENAL HORMONE PREPARATIONS [Concomitant]
     Indication: PREMEDICATION
     Dosage: RECEIVED 8 DOSES DURING THIS TIME
     Dates: start: 20090403, end: 20100225
  9. UNKNOWN ADRENAL HORMONE PREPARATIONS [Concomitant]
     Indication: PROPHYLAXIS
     Dosage: RECEIVED 8 DOSES DURING THIS TIME
     Dates: start: 20090403, end: 20100225
  10. FOLIC ACID [Concomitant]
  11. REMICADE [Suspect]
     Route: 042
     Dates: start: 20090914
  12. BIO THREE [Concomitant]
     Indication: CROHN'S DISEASE
     Route: 048
     Dates: start: 20090331
  13. REMICADE [Suspect]
     Route: 042
     Dates: start: 20090416
  14. REMICADE [Suspect]
     Route: 042
     Dates: start: 20090709
  15. REMICADE [Suspect]
     Route: 042
     Dates: start: 20090403
  16. REMICADE [Suspect]
     Route: 042
     Dates: start: 20100108

REACTIONS (4)
  - ABDOMINAL WALL ABSCESS [None]
  - WHITE BLOOD CELL COUNT DECREASED [None]
  - GASTROINTESTINAL PERFORATION [None]
  - HEPATIC FUNCTION ABNORMAL [None]
